FAERS Safety Report 18750520 (Version 1)
Quarter: 2021Q1

REPORT INFORMATION
  Report Type: Spontaneous
  Country: US (occurrence: US)
  Receive Date: 20210118
  Receipt Date: 20210118
  Transmission Date: 20210419
  Serious: No
  Sender: FDA-Public Use
  Company Number: US-BIOVITRUM-2021US0442

PATIENT
  Sex: Male
  Weight: 7 kg

DRUGS (7)
  1. PULMICORT 0.5 MG/2ML AMPUL?NEB [Concomitant]
  2. SYNAGIS [Suspect]
     Active Substance: PALIVIZUMAB
     Indication: PREMATURE BABY
     Dosage: 50MG/0.5ML VL LIQUID
     Route: 030
  3. GABAPENTIN 100 % POWDER [Concomitant]
  4. SYNAGIS [Suspect]
     Active Substance: PALIVIZUMAB
     Indication: BRAIN MALFORMATION
  5. SYNAGIS [Suspect]
     Active Substance: PALIVIZUMAB
     Indication: UNEVALUABLE EVENT
  6. REVATIO [Concomitant]
     Active Substance: SILDENAFIL CITRATE
  7. OMEPRAZOLE 100 % POWDER [Concomitant]

REACTIONS (2)
  - Off label use [Unknown]
  - Malaise [Unknown]
